FAERS Safety Report 4274553-0 (Version None)
Quarter: 2004Q1

REPORT INFORMATION
  Report Type: 
  Country: None (occurrence: None)
  Receive Date: 20040120
  Receipt Date: 20040115
  Transmission Date: 20041129
  Serious: Yes (Hospitalization)
  Sender: FDA-Public Use
  Company Number: IE-ROCHE-356165

PATIENT
  Age: 50 Year
  Sex: Male

DRUGS (1)
  1. XENICAL [Suspect]
     Indication: OBESITY
     Route: 048
     Dates: start: 20030619

REACTIONS (4)
  - ANGINA UNSTABLE [None]
  - CIRCULATORY COLLAPSE [None]
  - HYPOTENSION [None]
  - MALAISE [None]
